FAERS Safety Report 18222644 (Version 3)
Quarter: 2021Q2

REPORT INFORMATION
  Report Type: Report from Study
  Country: JP (occurrence: JP)
  Receive Date: 20200902
  Receipt Date: 20210607
  Transmission Date: 20210717
  Serious: Yes (Death, Other)
  Sender: FDA-Public Use
  Company Number: JP-PFIZER INC-2018498006

PATIENT
  Age: 68 Year
  Sex: Male
  Weight: 50 kg

DRUGS (1)
  1. LORLATINIB [Suspect]
     Active Substance: LORLATINIB
     Indication: LUNG CANCER METASTATIC
     Dosage: 100 MG, 1X/DAY
     Route: 048
     Dates: start: 20181122, end: 20190105

REACTIONS (3)
  - Blood glucose increased [Recovering/Resolving]
  - Neoplasm progression [Fatal]
  - Blood cholesterol increased [Unknown]

NARRATIVE: CASE EVENT DATE: 20181127
